FAERS Safety Report 5926632-7 (Version None)
Quarter: 2008Q4

REPORT INFORMATION
  Report Type: 
  Country: None (occurrence: None)
  Receive Date: 20081022
  Receipt Date: 20081020
  Transmission Date: 20090506
  Serious: Yes (Hospitalization)
  Sender: FDA-Public Use
  Company Number: B0542328A

PATIENT
  Age: 57 Year
  Sex: Female

DRUGS (1)
  1. VALTREX [Suspect]
     Indication: ORAL HERPES
     Dosage: 500MG THREE TIMES PER DAY
     Route: 048
     Dates: start: 20081012, end: 20081013

REACTIONS (3)
  - CONDITION AGGRAVATED [None]
  - LOCAL SWELLING [None]
  - PYREXIA [None]
